FAERS Safety Report 18014711 (Version 1)
Quarter: 2020Q3

REPORT INFORMATION
  Report Type: Not Available
  Country: US (occurrence: US)
  Receive Date: 20200713
  Receipt Date: 20200713
  Transmission Date: 20201103
  Serious: No
  Sender: FDA-Public Use
  Company Number: US-NEUROCRINE BIOSCIENCES INC.-2020NBI02214

PATIENT
  Age: 65 Year
  Sex: Female

DRUGS (6)
  1. INGREZZA [Suspect]
     Active Substance: VALBENAZINE
     Dosage: (40MG IN THE AM AND 80MG IN THE PM)
     Route: 048
  2. BYSTOLIC [Concomitant]
     Active Substance: NEBIVOLOL HYDROCHLORIDE
  3. CRESTOR [Concomitant]
     Active Substance: ROSUVASTATIN CALCIUM
  4. VITAMIN D [Concomitant]
     Active Substance: VITAMIN D NOS
  5. INGREZZA [Suspect]
     Active Substance: VALBENAZINE
     Indication: TARDIVE DYSKINESIA
     Route: 048
     Dates: start: 20190329
  6. INGREZZA [Suspect]
     Active Substance: VALBENAZINE
     Route: 048

REACTIONS (5)
  - Drug ineffective [Unknown]
  - Hypopnoea [Unknown]
  - Dizziness [Unknown]
  - Prescribed overdose [Unknown]
  - Feeling abnormal [Unknown]
